FAERS Safety Report 10777165 (Version 1)
Quarter: 2015Q1

REPORT INFORMATION
  Report Type: Report from Study
  Country: AR (occurrence: AR)
  Receive Date: 20150209
  Receipt Date: 20150209
  Transmission Date: 20150721
  Serious: Yes (Other)
  Sender: FDA-Public Use
  Company Number: PHHY2015AR015341

PATIENT
  Age: 69 Year
  Sex: Female

DRUGS (1)
  1. EXFORGE [Suspect]
     Active Substance: AMLODIPINE BESYLATE\VALSARTAN
     Indication: HYPERTENSION
     Dosage: 1 DF, QD
     Route: 048
     Dates: start: 201406

REACTIONS (3)
  - Meniscus injury [Recovering/Resolving]
  - Arthralgia [Recovering/Resolving]
  - Osteonecrosis [Recovering/Resolving]

NARRATIVE: CASE EVENT DATE: 201407
